FAERS Safety Report 4362809-2 (Version None)
Quarter: 2004Q2

REPORT INFORMATION
  Report Type: 
  Country: None (occurrence: None)
  Receive Date: 20040518
  Receipt Date: 20040506
  Transmission Date: 20050107
  Serious: Yes (Other)
  Sender: FDA-Public Use
  Company Number: US-JNJFOC-20040501455

PATIENT
  Age: 21 Year
  Sex: Female

DRUGS (2)
  1. IMODIUM ADVANCED [Suspect]
     Indication: DIARRHOEA
     Dosage: 2, THEN 1 Q4H PRN
     Dates: start: 20040425, end: 20040427
  2. DEPO-PROVERA [Concomitant]

REACTIONS (2)
  - DEHYDRATION [None]
  - DRUG INEFFECTIVE [None]
